FAERS Safety Report 9054790 (Version 1)
Quarter: 2013Q1

REPORT INFORMATION
  Report Type: Report from Study
  Country: US (occurrence: US)
  Receive Date: 20130208
  Receipt Date: 20130208
  Transmission Date: 20140127
  Serious: Yes (Hospitalization, Other)
  Sender: FDA-Public Use
  Company Number: US-ABBOTT-13P-163-1044554-00

PATIENT
  Age: 51 None
  Sex: Male
  Weight: 108.96 kg

DRUGS (1)
  1. HUMIRA [Suspect]
     Indication: RHEUMATOID ARTHRITIS
     Dates: start: 2002

REACTIONS (5)
  - Blood calcium decreased [Recovered/Resolved]
  - Spinal fusion surgery [Recovered/Resolved]
  - Parathyroid tumour [Recovered/Resolved]
  - Thyroid neoplasm [Not Recovered/Not Resolved]
  - Thyroid neoplasm [Not Recovered/Not Resolved]
